FAERS Safety Report 8280089-2 (Version None)
Quarter: 2012Q2

REPORT INFORMATION
  Report Type: 
  Country: None (occurrence: None)
  Receive Date: 20120412
  Receipt Date: 20111031
  Transmission Date: 20120825
  Serious: No
  Sender: FDA-Public Use
  Company Number: US-ASTRAZENECA-2011SE65993

PATIENT
  Age: 58 Year
  Sex: Female

DRUGS (2)
  1. PEPCID AC [Concomitant]
  2. NEXIUM [Suspect]
     Route: 048

REACTIONS (8)
  - DRUG DOSE OMISSION [None]
  - REGURGITATION [None]
  - ERUCTATION [None]
  - APHAGIA [None]
  - NAUSEA [None]
  - FLATULENCE [None]
  - CONSTIPATION [None]
  - MALAISE [None]
